FAERS Safety Report 5234379-8 (Version None)
Quarter: 2007Q1

REPORT INFORMATION
  Report Type: 
  Country: None (occurrence: None)
  Receive Date: 20070209
  Receipt Date: 20070129
  Transmission Date: 20070707
  Serious: Yes (Other)
  Sender: FDA-Public Use
  Company Number: US-ROCHE-474979

PATIENT
  Sex: Male

DRUGS (1)
  1. PEGASYS [Suspect]
     Indication: DRUG USE FOR UNKNOWN INDICATION
     Route: 065
     Dates: end: 20061115

REACTIONS (5)
  - AMMONIA INCREASED [None]
  - DEAFNESS UNILATERAL [None]
  - DELUSION [None]
  - DEMENTIA [None]
  - EAR PAIN [None]
